FAERS Safety Report 16080151 (Version 2)
Quarter: 2019Q1

REPORT INFORMATION
  Report Type: Spontaneous
  Country: US (occurrence: US)
  Receive Date: 20190315
  Receipt Date: 20190329
  Transmission Date: 20190418
  Serious: Yes (Life-Threatening, Hospitalization, Disabling, Other)
  Sender: FDA-Public Use
  Company Number: US-009507513-1903USA003192

PATIENT
  Age: 29 Year
  Sex: Female
  Weight: 100.68 kg

DRUGS (3)
  1. DEXTROAMPHETAMINE. [Concomitant]
     Active Substance: DEXTROAMPHETAMINE
     Indication: PRODUCT USED FOR UNKNOWN INDICATION
     Dosage: UNK
     Route: 065
     Dates: end: 20171114
  2. NUVARING [Suspect]
     Active Substance: ETHINYL ESTRADIOL\ETONOGESTREL
     Indication: CONTRACEPTION
     Dosage: 1 RING / 3 WEEKS CONTINUOUS USE
     Route: 067
     Dates: start: 2015, end: 20171109
  3. PROZAC [Concomitant]
     Active Substance: FLUOXETINE HYDROCHLORIDE

REACTIONS (2)
  - Cerebrovascular accident [Recovered/Resolved with Sequelae]
  - Deep vein thrombosis [Unknown]

NARRATIVE: CASE EVENT DATE: 20171109
